FAERS Safety Report 18305911 (Version 1)
Quarter: 2020Q3

REPORT INFORMATION
  Report Type: Spontaneous
  Country: US (occurrence: US)
  Receive Date: 20200923
  Receipt Date: 20200923
  Transmission Date: 20201103
  Serious: No
  Sender: FDA-Public Use
  Company Number: None

PATIENT
  Age: 77 Year
  Sex: Male
  Weight: 127 kg

DRUGS (1)
  1. VICTOZA [Suspect]
     Active Substance: LIRAGLUTIDE
     Route: 058
     Dates: start: 20200629, end: 20200824

REACTIONS (3)
  - Rhinorrhoea [None]
  - Confusional state [None]
  - Memory impairment [None]

NARRATIVE: CASE EVENT DATE: 20200824
